FAERS Safety Report 12484446 (Version 1)
Quarter: 2016Q2

REPORT INFORMATION
  Report Type: Spontaneous
  Country: FR (occurrence: FR)
  Receive Date: 20160621
  Receipt Date: 20160621
  Transmission Date: 20160815
  Serious: Yes (Hospitalization)
  Sender: FDA-Public Use
  Company Number: FR-PFIZER INC-2016292647

PATIENT
  Age: 13 Year
  Sex: Female
  Weight: 43 kg

DRUGS (8)
  1. IFOSFAMIDE EG [Suspect]
     Active Substance: IFOSFAMIDE
     Indication: EWING^S SARCOMA
     Dosage: 4300 MG, UNK
     Route: 042
     Dates: start: 20160527, end: 20160529
  2. DOXORUBICINE TEVA [Suspect]
     Active Substance: DOXORUBICIN
     Indication: EWING^S SARCOMA
     Dosage: 29 MG, UNK
     Route: 042
     Dates: start: 20160527, end: 20160529
  3. VINCRISTINE SULFATE. [Suspect]
     Active Substance: VINCRISTINE SULFATE
     Indication: EWING^S SARCOMA
     Dosage: 2 MG, UNK
     Route: 042
     Dates: start: 20160527, end: 20160527
  4. ZOPHREN /00955301/ [Concomitant]
     Active Substance: ONDANSETRON
     Dosage: 998 MG, UNK
     Route: 042
  5. SOLU-MEDROL [Concomitant]
     Active Substance: METHYLPREDNISOLONE SODIUM SUCCINATE
     Dosage: 43 MG, UNK
     Route: 042
  6. UROMITEXAN [Concomitant]
     Active Substance: MESNA
     Dosage: 5184 MG, UNK
     Route: 042
  7. VOGALENE [Concomitant]
     Active Substance: METOPIMAZINE
     Dosage: 14.19 MG THRICE
  8. ETOPOSIDE TEVA [Suspect]
     Active Substance: ETOPOSIDE
     Indication: EWING^S SARCOMA
     Dosage: 220 MG, UNK
     Route: 042
     Dates: start: 20160527, end: 20160529

REACTIONS (2)
  - Depressed level of consciousness [Recovering/Resolving]
  - Encephalopathy [Recovering/Resolving]

NARRATIVE: CASE EVENT DATE: 20160529
